FAERS Safety Report 15129360 (Version 1)
Quarter: 2018Q3

REPORT INFORMATION
  Report Type: Spontaneous
  Country: IT (occurrence: IT)
  Receive Date: 20180711
  Receipt Date: 20180711
  Transmission Date: 20181010
  Serious: Yes (Hospitalization)
  Sender: FDA-Public Use
  Company Number: IT-MERCK KGAA-2051719

PATIENT
  Age: 83 Year
  Sex: Female

DRUGS (10)
  1. LUVION [Concomitant]
  2. CIPRALEX [Suspect]
     Active Substance: ESCITALOPRAM OXALATE
     Route: 048
     Dates: start: 20170101, end: 20171203
  3. AMIODAR [Concomitant]
     Active Substance: AMIODARONE
  4. LASIX [Suspect]
     Active Substance: FUROSEMIDE
     Route: 048
     Dates: start: 20170101, end: 20171203
  5. LANSOX [Concomitant]
     Active Substance: LANSOPRAZOLE
  6. FOLINA [Concomitant]
     Active Substance: FOLIC ACID
  7. TORVAST [Concomitant]
     Active Substance: ATORVASTATIN
  8. ALLOPURINOL. [Concomitant]
     Active Substance: ALLOPURINOL
  9. NOVOTHYROX [Suspect]
     Active Substance: LEVOTHYROXINE SODIUM
     Indication: HYPOTHYROIDISM
     Route: 048
     Dates: start: 20170101, end: 20171203
  10. BISOPROLOL HEMIFUMARATE [Concomitant]
     Active Substance: BISOPROLOL FUMARATE

REACTIONS (3)
  - Blood potassium decreased [Unknown]
  - Ventricular fibrillation [Unknown]
  - Electrocardiogram QT prolonged [Unknown]

NARRATIVE: CASE EVENT DATE: 20171203
